FAERS Safety Report 6639510-5 (Version None)
Quarter: 2010Q1

REPORT INFORMATION
  Report Type: 
  Country: None (occurrence: None)
  Receive Date: 20100318
  Receipt Date: 20100303
  Transmission Date: 20100710
  Serious: Yes (Hospitalization, Other)
  Sender: FDA-Public Use
  Company Number: FR-ELI_LILLY_AND_COMPANY-FR201001001483

PATIENT
  Age: 77 Year
  Sex: Male

DRUGS (8)
  1. FORTEO [Suspect]
     Indication: OSTEOPOROSIS
     Dosage: 20 UG, DAILY (1/D)
     Route: 058
     Dates: start: 20091125, end: 20100101
  2. KARDEGIC [Concomitant]
     Dosage: UNK, UNKNOWN
     Route: 065
  3. PLAVIX [Concomitant]
     Dosage: UNK, UNKNOWN
     Route: 065
  4. IKOREL [Concomitant]
     Dosage: UNK, UNKNOWN
     Route: 065
  5. PRETERAX [Concomitant]
     Dosage: UNK, UNKNOWN
     Route: 065
  6. AMIODARONE HCL [Concomitant]
     Dosage: UNK, UNKNOWN
     Route: 065
  7. TAHOR [Concomitant]
     Dosage: UNK, UNKNOWN
     Route: 065
  8. EPINITRIL [Concomitant]
     Dosage: UNK, UNKNOWN
     Route: 065

REACTIONS (1)
  - CARDIAC DISORDER [None]
